FAERS Safety Report 10929784 (Version 5)
Quarter: 2015Q2

REPORT INFORMATION
  Report Type: Spontaneous
  Country: JP (occurrence: JP)
  Receive Date: 20150319
  Receipt Date: 20150527
  Transmission Date: 20150821
  Serious: Yes (Other)
  Sender: FDA-Public Use
  Company Number: AU-ASTRAZENECA-2015SE24181

PATIENT
  Age: 71 Year
  Sex: Male

DRUGS (3)
  1. MARCAINE [Interacting]
     Active Substance: BUPIVACAINE HYDROCHLORIDE
     Indication: SPINAL ANAESTHESIA
     Route: 037
     Dates: start: 20150204
  2. RISPERIDONE. [Interacting]
     Active Substance: RISPERIDONE
     Indication: SCHIZOPHRENIA
     Dosage: PFIZER, 1 MG DAILY
     Route: 048
     Dates: start: 20150204
  3. PENTCILLIN [Suspect]
     Active Substance: PIPERACILLIN SODIUM
     Dosage: NON AZ DRUG
     Route: 065

REACTIONS (4)
  - Drug interaction [Unknown]
  - Heart rate increased [Recovered/Resolved]
  - Rash [Recovered/Resolved]
  - Blood pressure decreased [Recovered/Resolved]

NARRATIVE: CASE EVENT DATE: 20150204
